FAERS Safety Report 9170670 (Version 1)
Quarter: 2013Q1

REPORT INFORMATION
  Report Type: Spontaneous
  Country: US (occurrence: US)
  Receive Date: 20130319
  Receipt Date: 20130319
  Transmission Date: 20140127
  Serious: No
  Sender: FDA-Public Use
  Company Number: US-BAYER-2013-021783

PATIENT
  Age: 67 Year
  Sex: Male

DRUGS (6)
  1. AVELOX [Suspect]
     Indication: RESPIRATORY TRACT INFECTION
     Dosage: 400 MG, QD
  2. CRESTOR [Concomitant]
  3. LISINOPRIL [Concomitant]
  4. ADVAIR [Concomitant]
  5. ALBUTEROL [Concomitant]
  6. ASPIRIN [Concomitant]

REACTIONS (5)
  - Feeling jittery [None]
  - Paraesthesia [None]
  - Tremor [None]
  - Gait disturbance [None]
  - Muscle tightness [None]
